FAERS Safety Report 5614124-4 (Version None)
Quarter: 2008Q1

REPORT INFORMATION
  Report Type: 
  Country: None (occurrence: None)
  Receive Date: 20080205
  Receipt Date: 20080125
  Transmission Date: 20080703
  Serious: Yes (Death, Other)
  Sender: FDA-Public Use
  Company Number: CN-WYE-H02405808

PATIENT
  Sex: Male

DRUGS (4)
  1. CORDARONE [Suspect]
     Indication: VENTRICULAR TACHYCARDIA
     Dosage: 1500 MG IN 24 HOURS
     Route: 041
     Dates: start: 20080101, end: 20080101
  2. CORDARONE [Suspect]
     Indication: VENTRICULAR EXTRASYSTOLES
  3. LANATOSIDE C [Concomitant]
     Indication: CARDIAC FAILURE
     Dosage: DOSE AND FREQUENCY NOT SPECIFIED
     Route: 065
  4. DOPAMINE HCL [Concomitant]
     Indication: CARDIOGENIC SHOCK
     Dosage: DOSE AND FREQUENCY NOT SPECIFIED
     Route: 065

REACTIONS (2)
  - ACUTE HEPATIC FAILURE [None]
  - CARDIAC DEATH [None]
